FAERS Safety Report 16904556 (Version 1)
Quarter: 2019Q4

REPORT INFORMATION
  Report Type: Spontaneous
  Country: US (occurrence: US)
  Receive Date: 20191010
  Receipt Date: 20191010
  Transmission Date: 20200122
  Serious: Yes (Hospitalization)
  Sender: FDA-Public Use
  Company Number: US-LUNDBECK-DKLU3005745

PATIENT
  Sex: Female

DRUGS (31)
  1. NORTHERA [Suspect]
     Active Substance: DROXIDOPA
     Indication: ORTHOSTATIC HYPOTENSION
     Dosage: DAY 1 AND 2
     Route: 048
  2. ASPIRIN. [Concomitant]
     Active Substance: ASPIRIN
     Indication: PRODUCT USED FOR UNKNOWN INDICATION
     Route: 048
  3. NORTHERA [Suspect]
     Active Substance: DROXIDOPA
     Dosage: DAY 3 AND 4
     Route: 048
  4. NORTHERA [Suspect]
     Active Substance: DROXIDOPA
     Dosage: DAY 7 AND 8
     Route: 048
  5. NORTHERA [Suspect]
     Active Substance: DROXIDOPA
     Dosage: DAY 11 AND THEREAFTER
     Route: 048
  6. DESMOPRESSIN ACETATE. [Concomitant]
     Active Substance: DESMOPRESSIN ACETATE
     Indication: PRODUCT USED FOR UNKNOWN INDICATION
     Route: 065
  7. NORTHERA [Suspect]
     Active Substance: DROXIDOPA
     Dosage: DAY 5 AND 6
     Route: 048
  8. NORTHERA [Suspect]
     Active Substance: DROXIDOPA
     Dosage: DAY 9 AND 10
     Route: 048
  9. NORTHERA [Suspect]
     Active Substance: DROXIDOPA
     Dosage: DAY 9 AND 10
     Route: 048
  10. NORTHERA [Suspect]
     Active Substance: DROXIDOPA
     Dosage: DAY 9 AND 10
     Route: 048
  11. NORTHERA [Suspect]
     Active Substance: DROXIDOPA
     Dosage: DAY 5 AND 6
     Route: 048
  12. NORTHERA [Suspect]
     Active Substance: DROXIDOPA
     Dosage: DAY 5 AND 6
     Route: 048
  13. GABAPENTIN. [Concomitant]
     Active Substance: GABAPENTIN
     Indication: PRODUCT USED FOR UNKNOWN INDICATION
     Route: 065
  14. NOVOLOG [Concomitant]
     Active Substance: INSULIN ASPART
     Route: 065
  15. NORTHERA [Suspect]
     Active Substance: DROXIDOPA
     Dosage: DAY 7 AND 8
     Route: 048
  16. NORTHERA [Suspect]
     Active Substance: DROXIDOPA
     Dosage: DAY 11 AND THEREAFTER
     Route: 048
  17. FLUOXETINE HYDROCHLORIDE. [Concomitant]
     Active Substance: FLUOXETINE HYDROCHLORIDE
     Indication: PRODUCT USED FOR UNKNOWN INDICATION
     Route: 065
  18. PROZAC [Concomitant]
     Active Substance: FLUOXETINE HYDROCHLORIDE
     Indication: PRODUCT USED FOR UNKNOWN INDICATION
     Route: 065
  19. NORTHERA [Suspect]
     Active Substance: DROXIDOPA
     Dosage: DAY 1 AND 2
     Route: 048
  20. NORTHERA [Suspect]
     Active Substance: DROXIDOPA
     Dosage: DAY 1 AND 2
     Route: 048
  21. NORTHERA [Suspect]
     Active Substance: DROXIDOPA
     Dosage: DAY 3 AND 4
     Route: 048
  22. NORTHERA [Suspect]
     Active Substance: DROXIDOPA
     Dosage: DAY 3 AND 4
     Route: 048
  23. NORTHERA [Suspect]
     Active Substance: DROXIDOPA
     Dosage: DAY 7 AND 8
     Route: 048
  24. PYRIDOSTIGMINE BROMIDE. [Concomitant]
     Active Substance: PYRIDOSTIGMINE BROMIDE
     Indication: PRODUCT USED FOR UNKNOWN INDICATION
     Route: 065
  25. GLIMEPIRIDE. [Concomitant]
     Active Substance: GLIMEPIRIDE
     Indication: PRODUCT USED FOR UNKNOWN INDICATION
     Route: 065
  26. MIDODRINE HYDROCHLORIDE. [Concomitant]
     Active Substance: MIDODRINE HYDROCHLORIDE
     Indication: PRODUCT USED FOR UNKNOWN INDICATION
     Route: 065
  27. NOVOLOG [Concomitant]
     Active Substance: INSULIN ASPART
     Indication: PRODUCT USED FOR UNKNOWN INDICATION
     Route: 065
  28. NORTHERA [Suspect]
     Active Substance: DROXIDOPA
     Dosage: DAY 11 AND THEREAFTER
     Route: 048
  29. BRILINTA [Concomitant]
     Active Substance: TICAGRELOR
     Indication: PRODUCT USED FOR UNKNOWN INDICATION
     Route: 065
  30. ATORVASTATIN CALCIUM. [Concomitant]
     Active Substance: ATORVASTATIN CALCIUM
     Indication: PRODUCT USED FOR UNKNOWN INDICATION
     Route: 065
  31. LANTUS [Concomitant]
     Active Substance: INSULIN GLARGINE
     Indication: PRODUCT USED FOR UNKNOWN INDICATION
     Route: 065

REACTIONS (1)
  - Blood pressure abnormal [Unknown]
